FAERS Safety Report 9997924 (Version 1)
Quarter: 2014Q1

REPORT INFORMATION
  Report Type: Spontaneous
  Country: DE (occurrence: DE)
  Receive Date: 20140311
  Receipt Date: 20140311
  Transmission Date: 20141002
  Serious: Yes (Life-Threatening, Hospitalization)
  Sender: FDA-Public Use
  Company Number: DE-MYLANLABS-2014S1004475

PATIENT
  Age: 54 Year
  Sex: Female
  Weight: 90 kg

DRUGS (3)
  1. DOXYCYCLINE [Suspect]
     Indication: ATYPICAL PNEUMONIA
     Dosage: DAILY DOSE: 200 MG MILLGRAM(S) EVERY DAYS
  2. CAPRELSA [Suspect]
     Indication: THYROID CANCER
     Dosage: DAILY DOSE: 300 MG MILLGRAM(S) EVERY DAYS
  3. CEFUROXIME [Suspect]
     Indication: ATYPICAL PNEUMONIA
     Dosage: DAILY DOSE: 2 DF DOSAGE FORM EVERY DAYS

REACTIONS (1)
  - Pancreatitis [Recovering/Resolving]
